FAERS Safety Report 11865815 (Version 1)
Quarter: 2015Q4

REPORT INFORMATION
  Report Type: Report from Study
  Country: IT (occurrence: IT)
  Receive Date: 20151223
  Receipt Date: 20151223
  Transmission Date: 20160305
  Serious: Yes (Death)
  Sender: FDA-Public Use
  Company Number: IT-BAXTER-2015BAX069984

PATIENT

DRUGS (5)
  1. ENDOXAN BAXTER [Suspect]
     Active Substance: CYCLOPHOSPHAMIDE
     Indication: SPLENIC MARGINAL ZONE LYMPHOMA
     Dosage: ON DAY 1
     Route: 065
  2. LIPOSOMAL DOXORUBICIN [Suspect]
     Active Substance: DOXORUBICIN HYDROCHLORIDE
     Indication: SPLENIC MARGINAL ZONE LYMPHOMA
     Route: 065
  3. PREDNISONE. [Suspect]
     Active Substance: PREDNISONE
     Indication: SPLENIC MARGINAL ZONE LYMPHOMA
     Dosage: ON DAYS 1-5
     Route: 065
  4. VINCRISTINE [Suspect]
     Active Substance: VINCRISTINE
     Indication: SPLENIC MARGINAL ZONE LYMPHOMA
     Dosage: CAP AT 2 MG
     Route: 065
  5. RITUXIMAB [Suspect]
     Active Substance: RITUXIMAB
     Indication: SPLENIC MARGINAL ZONE LYMPHOMA
     Dosage: DAY 8 OF THE FIRST CYCLE AND DAY 1 FOR SUBSEQUENT CYCLES
     Route: 065

REACTIONS (1)
  - Non-Hodgkin^s lymphoma [Fatal]
